FAERS Safety Report 19409924 (Version 1)
Quarter: 2021Q2

REPORT INFORMATION
  Report Type: Spontaneous
  Country: US (occurrence: US)
  Receive Date: 20210614
  Receipt Date: 20210614
  Transmission Date: 20210717
  Serious: Yes (Death, Other)
  Sender: FDA-Public Use
  Company Number: US-AMGEN-USASP2021087775

PATIENT
  Sex: Male

DRUGS (3)
  1. NEULASTA [Suspect]
     Active Substance: PEGFILGRASTIM
     Indication: WHITE BLOOD CELL COUNT DECREASED
     Dosage: UNK
     Route: 065
     Dates: start: 2021
  2. GOLYTELY [Concomitant]
     Active Substance: POLYETHYLENE GLYCOL 3350\POTASSIUM CHLORIDE\SODIUM BICARBONATE\SODIUM CHLORIDE\SODIUM SULFATE
     Dosage: UNK
     Dates: start: 2021
  3. NEUPOGEN [Suspect]
     Active Substance: FILGRASTIM
     Indication: WHITE BLOOD CELL COUNT DECREASED
     Dosage: UNK
     Route: 065
     Dates: start: 2021

REACTIONS (11)
  - Pneumonia [Fatal]
  - Condition aggravated [Unknown]
  - Rash macular [Unknown]
  - Renal disorder [Unknown]
  - Heart rate increased [Unknown]
  - Product administration error [Unknown]
  - Bladder dilatation [Unknown]
  - Acute respiratory failure [Fatal]
  - Dysuria [Unknown]
  - Hypotension [Unknown]
  - Contusion [Unknown]

NARRATIVE: CASE EVENT DATE: 2021
